FAERS Safety Report 5236519-3 (Version None)
Quarter: 2007Q1

REPORT INFORMATION
  Report Type: 
  Country: None (occurrence: None)
  Receive Date: 20070208
  Receipt Date: 20070129
  Transmission Date: 20070707
  Serious: Yes (Hospitalization, Other)
  Sender: FDA-Public Use
  Company Number: CHNY2007GB00690

PATIENT
  Age: 78 Year
  Sex: Female
  Weight: 60 kg

DRUGS (13)
  1. SCOPODERM TTS (NCH)(HYOSCINE HYDROBROMIDE) TRANS-THERAPEUTIC-SYSTEM [Suspect]
     Indication: SALIVARY HYPERSECRETION
     Dosage: 1 PATCH WAS APPLIED, TRANSDERMAL
     Route: 062
     Dates: start: 20061107, end: 20061108
  2. ADCAL-D3 (CALCIUM CARBONATE, COLECALCIFEROL) [Concomitant]
  3. ASPIRIN [Concomitant]
  4. BACLOFEN [Concomitant]
  5. BENDROFLUMETHIAZIDE (BENDROFLUMETHIAZIDE) [Concomitant]
  6. BISACODYL (BISACODYL) [Concomitant]
  7. CIPRALEX /GFR/ (ESCITALOPRAM OXALATE) [Concomitant]
  8. ENTACAPONE (ENTACAPONE) [Concomitant]
  9. FOSAMAX [Concomitant]
  10. LEVOTHYROXINE SODIUM [Concomitant]
  11. PANTOPRAZOLE SODIUM [Concomitant]
  12. SINEMET [Concomitant]
  13. ZOPICLONE (ZOPICLONE) [Concomitant]

REACTIONS (4)
  - CONFUSIONAL STATE [None]
  - FALL [None]
  - HALLUCINATION, VISUAL [None]
  - HEAD INJURY [None]
